FAERS Safety Report 4599634-3 (Version None)
Quarter: 2005Q1

REPORT INFORMATION
  Report Type: 
  Country: None (occurrence: None)
  Receive Date: 20050303
  Receipt Date: 20050225
  Transmission Date: 20050727
  Serious: Yes (Other)
  Sender: FDA-Public Use
  Company Number: 050013

PATIENT
  Age: 73 Year
  Sex: Male

DRUGS (2)
  1. NULYTELY [Suspect]
     Indication: COLONOSCOPY
     Dosage: 3 DUCOLAX, 1X, PO; 4L, 1X, PO
     Route: 048
     Dates: start: 20050217
  2. BLOOD PRESSURE AND CHOLESTEROL MEDICATION [Concomitant]

REACTIONS (1)
  - HAEMORRHAGE [None]
